FAERS Safety Report 24304464 (Version 1)
Quarter: 2024Q3

REPORT INFORMATION
  Report Type: Spontaneous
  Country: US (occurrence: US)
  Receive Date: 20240910
  Receipt Date: 20240910
  Transmission Date: 20241016
  Serious: Yes (Hospitalization, Other)
  Sender: TIME CAPS
  Company Number: US-Time-Cap Labs, Inc.-2161452

PATIENT

DRUGS (1)
  1. BISACODYL [Suspect]
     Active Substance: BISACODYL
     Indication: Laxative supportive care
     Dates: start: 20240828, end: 20240828

REACTIONS (1)
  - Hospitalisation [Unknown]
